FAERS Safety Report 5831070-1 (Version None)
Quarter: 2008Q3

REPORT INFORMATION
  Report Type: 
  Country: None (occurrence: None)
  Receive Date: 20080801
  Receipt Date: 20080325
  Transmission Date: 20090109
  Serious: No
  Sender: FDA-Public Use
  Company Number: US-BRISTOL-MYERS SQUIBB COMPANY-14125595

PATIENT
  Age: 76 Year
  Sex: Male

DRUGS (9)
  1. COUMADIN [Suspect]
     Dosage: 08-FEB-08 STOPPED, 10-FEB-08 RESTARTED AT 5MG AND LATER DECREASED TO 2.5MG DAILY.
  2. RESTASIS [Interacting]
     Indication: DRY EYE
     Dosage: 30JAN08 INCREASED BID; 08FEB08 STOPPED; 13FEB08 RESTARTED OD; 19FEB08 STOPPED; 21FEB08 RESTARTED OD
     Dates: start: 20080123
  3. CARAFATE [Concomitant]
  4. INSPRA [Concomitant]
  5. POTASSIUM CHLORIDE [Concomitant]
  6. CALCIUM CITRATE [Concomitant]
  7. MAGNESIUM CITRATE [Concomitant]
  8. AVAPRO [Concomitant]
  9. ACYCLOVIR [Concomitant]
     Indication: HERPES SIMPLEX

REACTIONS (5)
  - DRUG INTERACTION [None]
  - EPISTAXIS [None]
  - HAEMOPTYSIS [None]
  - INTERNATIONAL NORMALISED RATIO INCREASED [None]
  - LOCALISED INFECTION [None]
